FAERS Safety Report 18192761 (Version 1)
Quarter: 2020Q3

REPORT INFORMATION
  Report Type: Spontaneous
  Country: GB (occurrence: GB)
  Receive Date: 20200825
  Receipt Date: 20200825
  Transmission Date: 20201103
  Serious: Yes (Other)
  Sender: FDA-Public Use
  Company Number: GB-ELI_LILLY_AND_COMPANY-GB202004006694

PATIENT
  Age: 64 Year
  Sex: Female

DRUGS (5)
  1. TRULICITY [Suspect]
     Active Substance: DULAGLUTIDE
     Dosage: 0.75 MG, UNKNOWN
     Route: 058
  2. TRULICITY [Suspect]
     Active Substance: DULAGLUTIDE
     Dosage: 0.75 MG, WEEKLY (1/W)
     Route: 058
     Dates: start: 20200511
  3. TRULICITY [Suspect]
     Active Substance: DULAGLUTIDE
     Indication: TYPE 2 DIABETES MELLITUS
     Dosage: 0.75 MG, WEEKLY (1/W)
     Route: 058
     Dates: start: 20200323
  4. TRULICITY [Suspect]
     Active Substance: DULAGLUTIDE
     Indication: TYPE 2 DIABETES MELLITUS
     Dosage: 0.75 MG, WEEKLY (1/W)
     Route: 058
     Dates: start: 20200323
  5. TRULICITY [Suspect]
     Active Substance: DULAGLUTIDE
     Dosage: 0.75 MG, UNKNOWN
     Route: 058

REACTIONS (19)
  - Fatigue [Recovering/Resolving]
  - Affect lability [Recovering/Resolving]
  - Gastrointestinal disorder [Recovering/Resolving]
  - Blood glucose decreased [Unknown]
  - Lethargy [Unknown]
  - Eructation [Recovering/Resolving]
  - Malaise [Not Recovered/Not Resolved]
  - Skin cancer [Unknown]
  - Diabetic neuropathy [Recovering/Resolving]
  - Depression [Unknown]
  - Gastrooesophageal reflux disease [Unknown]
  - Nausea [Unknown]
  - Diarrhoea [Unknown]
  - Blood glucose increased [Unknown]
  - Malaise [Recovering/Resolving]
  - Dyspepsia [Unknown]
  - Dehydration [Recovering/Resolving]
  - Suicidal ideation [Unknown]
  - Neuropathy peripheral [Unknown]

NARRATIVE: CASE EVENT DATE: 20200511
